FAERS Safety Report 6895625-8 (Version None)
Quarter: 2010Q3

REPORT INFORMATION
  Report Type: 
  Country: None (occurrence: None)
  Receive Date: 20100730
  Receipt Date: 20100730
  Transmission Date: 20110219
  Serious: Yes (Disabling)
  Sender: FDA-Public Use
  Company Number: None

PATIENT
  Age: 60 Year
  Sex: Female
  Weight: 68.0396 kg

DRUGS (1)
  1. LEVAQUIN [Suspect]
     Indication: SINUSITIS
     Dosage: 1 1/DAY PO
     Route: 048
     Dates: start: 20100623, end: 20100628

REACTIONS (3)
  - BURNING SENSATION [None]
  - MUSCLE RUPTURE [None]
  - SWELLING [None]
